FAERS Safety Report 5081261-5 (Version None)
Quarter: 2006Q3

REPORT INFORMATION
  Report Type: 
  Country: None (occurrence: None)
  Receive Date: 20060810
  Receipt Date: 20060804
  Transmission Date: 20061208
  Serious: Yes (Hospitalization)
  Sender: FDA-Public Use
  Company Number: E2090-00057-SPO-US

PATIENT
  Age: 3 Year
  Sex: Male
  Weight: 18 kg

DRUGS (9)
  1. ZONEGRAN [Suspect]
     Indication: PETIT MAL EPILEPSY
     Dosage: SEE IMAGE
     Route: 048
     Dates: start: 20060101, end: 20060101
  2. ZONEGRAN [Suspect]
     Indication: PETIT MAL EPILEPSY
     Dosage: SEE IMAGE
     Route: 048
     Dates: start: 20060101, end: 20060101
  3. ZONEGRAN [Suspect]
     Indication: PETIT MAL EPILEPSY
     Dosage: SEE IMAGE
     Route: 048
     Dates: start: 20060401, end: 20060101
  4. ZONEGRAN [Suspect]
     Indication: PETIT MAL EPILEPSY
     Dosage: SEE IMAGE
     Route: 048
     Dates: start: 20060101, end: 20060706
  5. ZONEGRAN [Suspect]
     Indication: PETIT MAL EPILEPSY
     Dosage: SEE IMAGE
     Route: 048
     Dates: start: 20060707
  6. TRILEPTAL [Concomitant]
  7. KEPPRA [Concomitant]
  8. MIRALAX [Concomitant]
  9. PHENOBARBITAL TAB [Concomitant]

REACTIONS (4)
  - CONDITION AGGRAVATED [None]
  - CONVULSION [None]
  - IRRITABILITY [None]
  - SMALL INTESTINAL OBSTRUCTION [None]
